FAERS Safety Report 18931458 (Version 1)
Quarter: 2021Q1

REPORT INFORMATION
  Report Type: Spontaneous
  Country: US (occurrence: US)
  Receive Date: 20210224
  Receipt Date: 20210224
  Transmission Date: 20210420
  Serious: No
  Sender: FDA-Public Use
  Company Number: US-SA-2021SA060329

PATIENT
  Sex: Male

DRUGS (6)
  1. ALBUTEROL SULFATE. [Concomitant]
     Active Substance: ALBUTEROL SULFATE
     Indication: ASTHMA
  2. NUCALA [Suspect]
     Active Substance: MEPOLIZUMAB
     Dosage: UNK
  3. XOLAIR [Suspect]
     Active Substance: OMALIZUMAB
  4. DUPIXENT [Suspect]
     Active Substance: DUPILUMAB
     Dosage: 200 MG, QOW
     Route: 058
  5. BREOPRIN [Suspect]
     Active Substance: ASPIRIN
     Dosage: UNK
  6. MONTELUKAST SODIUM. [Suspect]
     Active Substance: MONTELUKAST SODIUM

REACTIONS (1)
  - Fatigue [Unknown]
